FAERS Safety Report 11627611 (Version 1)
Quarter: 2015Q4

REPORT INFORMATION
  Report Type: Spontaneous
  Country: US (occurrence: US)
  Receive Date: 20151014
  Receipt Date: 20151014
  Transmission Date: 20160304
  Serious: No
  Sender: FDA-Public Use
  Company Number: US-TEVA-587765USA

PATIENT

DRUGS (1)
  1. ESOMEPRAZOLE [Suspect]
     Active Substance: ESOMEPRAZOLE
     Route: 048

REACTIONS (3)
  - Odynophagia [Unknown]
  - Regurgitation [Unknown]
  - Dyspepsia [Unknown]
